FAERS Safety Report 6969579-X (Version None)
Quarter: 2010Q3

REPORT INFORMATION
  Report Type: 
  Country: None (occurrence: None)
  Receive Date: 20100907
  Receipt Date: 20100907
  Transmission Date: 20110219
  Serious: Yes (Other)
  Sender: FDA-Public Use
  Company Number: None

PATIENT
  Age: 66 Year
  Sex: Female
  Weight: 56.6996 kg

DRUGS (2)
  1. ZICAM NASAL SWABS [Suspect]
     Indication: MULTIPLE ALLERGIES
     Dates: start: 20051001, end: 20070420
  2. ZICAM NASAL SWABS [Suspect]
     Indication: SINUS CONGESTION
     Dates: start: 20051001, end: 20070420

REACTIONS (2)
  - AGEUSIA [None]
  - HYPOSMIA [None]
